FAERS Safety Report 9255354 (Version 1)
Quarter: 2013Q1

REPORT INFORMATION
  Report Type: Spontaneous
  Country: US (occurrence: None)
  Receive Date: 20121212
  Receipt Date: 20121212
  Transmission Date: 20140127
  Serious: No
  Sender: FDA-Public Use
  Company Number: 1209USA009827

PATIENT
  Age: 53 Year
  Sex: Female

DRUGS (3)
  1. PEG-INTRON [Suspect]
     Indication: HEPATITIS C
     Dates: start: 20120406
  2. REBETOL [Suspect]
     Indication: HEPATITIS C
     Dates: start: 20120406
  3. VICTRELIS [Suspect]
     Indication: HEPATITIS C
     Dates: start: 20120507

REACTIONS (4)
  - Urinary tract infection [None]
  - Pelvic pain [None]
  - Feeling abnormal [None]
  - Neutrophil count abnormal [None]
